FAERS Safety Report 6880519-4 (Version None)
Quarter: 2010Q3

REPORT INFORMATION
  Report Type: 
  Country: None (occurrence: None)
  Receive Date: 20100727
  Receipt Date: 20100719
  Transmission Date: 20110219
  Serious: Yes (Hospitalization)
  Sender: FDA-Public Use
  Company Number: B0665942A

PATIENT
  Age: 40 Year
  Sex: Male
  Weight: 97.3 kg

DRUGS (1)
  1. MALARONE [Suspect]
     Indication: MALARIA PROPHYLAXIS
     Route: 048
     Dates: start: 20100523, end: 20100530

REACTIONS (4)
  - ERYTHEMA [None]
  - PRURITUS [None]
  - SKIN REACTION [None]
  - URTICARIA [None]
